FAERS Safety Report 15600794 (Version 1)
Quarter: 2018Q4

REPORT INFORMATION
  Report Type: Spontaneous
  Country: TR (occurrence: TR)
  Receive Date: 20181109
  Receipt Date: 20181109
  Transmission Date: 20190205
  Serious: Yes (Life-Threatening)
  Sender: FDA-Public Use
  Company Number: TR-ELI_LILLY_AND_COMPANY-TR201811003598

PATIENT
  Age: 30 Year
  Sex: Male
  Weight: 70 kg

DRUGS (6)
  1. KEPPRA [Suspect]
     Active Substance: LEVETIRACETAM
     Indication: SUBARACHNOID HAEMORRHAGE
     Dosage: 500 MG, BID
     Route: 065
     Dates: start: 20181024
  2. MUCINAC [Concomitant]
     Indication: SUBARACHNOID HAEMORRHAGE
     Dosage: 3 DF, DAILY
     Route: 042
     Dates: start: 20181024
  3. MAGNESIUM [Suspect]
     Active Substance: MAGNESIUM
     Indication: PRODUCT USED FOR UNKNOWN INDICATION
     Dosage: UNK, UNKNOWN
     Route: 065
     Dates: start: 20181024, end: 20181024
  4. RANITAB [RANITIDINE] [Concomitant]
     Indication: SUBARACHNOID HAEMORRHAGE
     Dosage: 3 DF, DAILY
     Route: 042
     Dates: start: 20181024
  5. HUMULIN R [Suspect]
     Active Substance: INSULIN HUMAN
     Indication: HYPERGLYCAEMIA
     Dosage: 3 IU, SINGLE
     Route: 065
     Dates: start: 20181024, end: 20181024
  6. PENTOTHAL [Concomitant]
     Active Substance: THIOPENTAL SODIUM
     Indication: SUBARACHNOID HAEMORRHAGE
     Dosage: UNK, UNKNOWN
     Route: 042
     Dates: start: 20181024

REACTIONS (3)
  - Generalised erythema [Recovering/Resolving]
  - Supraventricular tachycardia [Recovering/Resolving]
  - Hypertension [Recovering/Resolving]

NARRATIVE: CASE EVENT DATE: 20181024
